FAERS Safety Report 18898841 (Version 1)
Quarter: 2021Q1

REPORT INFORMATION
  Report Type: Spontaneous
  Country: US (occurrence: US)
  Receive Date: 20210213
  Receipt Date: 20210213
  Transmission Date: 20210420
  Serious: No
  Sender: FDA-Public Use
  Company Number: None

PATIENT
  Age: 54 Year
  Sex: Female
  Weight: 99 kg

DRUGS (1)
  1. MANUKA HONEY ALLERCLEANSE [Suspect]
     Active Substance: HERBALS\HONEY
     Indication: HYPERSENSITIVITY
     Route: 055

REACTIONS (2)
  - Thermal burn [None]
  - Eye irritation [None]

NARRATIVE: CASE EVENT DATE: 20200615
